FAERS Safety Report 8495968-0 (Version None)
Quarter: 2012Q3

REPORT INFORMATION
  Report Type: 
  Country: None (occurrence: None)
  Receive Date: 20120709
  Receipt Date: 20120627
  Transmission Date: 20120928
  Serious: Yes (Other)
  Sender: FDA-Public Use
  Company Number: JP-GLAXOSMITHKLINE-B0808422A

PATIENT
  Age: 29 Year
  Sex: Female

DRUGS (3)
  1. VANCOMYCIN HYDROCHLORIDE [Concomitant]
     Indication: MENINGITIS ASEPTIC
     Route: 065
  2. ACYCLOVIR [Suspect]
     Indication: MENINGITIS ASEPTIC
     Route: 048
  3. CEFTRIAXONE SODIUM [Concomitant]
     Indication: MENINGITIS ASEPTIC

REACTIONS (8)
  - NYSTAGMUS [None]
  - ACUTE DISSEMINATED ENCEPHALOMYELITIS [None]
  - NEUROMYELITIS OPTICA [None]
  - DYSLALIA [None]
  - ANORECTAL DISORDER [None]
  - NAUSEA [None]
  - MULTIPLE SCLEROSIS [None]
  - ILLUSION [None]
